FAERS Safety Report 8416175-3 (Version None)
Quarter: 2012Q2

REPORT INFORMATION
  Report Type: 
  Country: None (occurrence: None)
  Receive Date: 20120606
  Receipt Date: 20120604
  Transmission Date: 20120825
  Serious: Yes (Life-Threatening, Hospitalization)
  Sender: FDA-Public Use
  Company Number: PHHY2012PL047981

PATIENT
  Sex: Male

DRUGS (1)
  1. BASILIXIMAB [Suspect]
     Indication: HEART TRANSPLANT
     Dosage: UNK UKN, UNK

REACTIONS (5)
  - GASTRIC ULCER HAEMORRHAGE [None]
  - LOW CARDIAC OUTPUT SYNDROME [None]
  - RENAL FAILURE [None]
  - CARDIAC ARREST [None]
  - RESPIRATORY FAILURE [None]
